FAERS Safety Report 9403413 (Version 1)
Quarter: 2013Q3

REPORT INFORMATION
  Report Type: Spontaneous
  Country: CN (occurrence: CN)
  Receive Date: 20130716
  Receipt Date: 20130716
  Transmission Date: 20140515
  Serious: Yes (Other)
  Sender: FDA-Public Use
  Company Number: CN-BAXTER-2013BAX026549

PATIENT
  Age: 48 Year
  Sex: Male
  Weight: 75 kg

DRUGS (3)
  1. 0.9% SODIUM CHLORIDE INJECTION [Suspect]
     Indication: MEDICATION DILUTION
     Route: 041
     Dates: start: 20120113, end: 20120113
  2. CREATINE PHOSPHATE SODIUM [Suspect]
     Indication: MYOCARDIAL INFARCTION
     Route: 041
     Dates: start: 20120113, end: 20120113
  3. POTASSIUM ASPARTATE AND MAGNESIUM ASPARTATE INJECTION [Suspect]
     Indication: MYOCARDIAL INFARCTION

REACTIONS (2)
  - Chills [Recovered/Resolved]
  - Headache [Recovered/Resolved]
